FAERS Safety Report 16974187 (Version 2)
Quarter: 2020Q1

REPORT INFORMATION
  Report Type: Spontaneous
  Country: PL (occurrence: PL)
  Receive Date: 20191030
  Receipt Date: 20200121
  Transmission Date: 20200409
  Serious: Yes (Other)
  Sender: FDA-Public Use
  Company Number: NVSC2019PL017943

PATIENT
  Age: 31 Year
  Sex: Male

DRUGS (16)
  1. MET [METRONIDAZOLE] [Suspect]
     Active Substance: METRONIDAZOLE
     Indication: ESCHERICHIA INFECTION
  2. MEROPENEM. [Suspect]
     Active Substance: MEROPENEM
     Dosage: 2.0 G, QD (3X2.0G)
     Route: 042
  3. PIPERACILLIN,TAZOBACTAM [Suspect]
     Active Substance: PIPERACILLIN SODIUM\TAZOBACTAM SODIUM
     Indication: ESCHERICHIA INFECTION
     Dosage: 0.5 G, QD (3X0.5G)
     Route: 042
  4. AMIKACIN. [Suspect]
     Active Substance: AMIKACIN
     Indication: ANTIBIOTIC THERAPY
     Dosage: 0.6 G, QD
     Route: 065
  5. IMIPENEM [Suspect]
     Active Substance: IMIPENEM
     Indication: PSEUDOMONAS INFECTION
  6. PIPERACILLIN,TAZOBACTAM [Suspect]
     Active Substance: PIPERACILLIN SODIUM\TAZOBACTAM SODIUM
     Indication: ENTEROCOCCAL INFECTION
     Dosage: 4.0 G, QD (3X4.0G)
     Route: 042
  7. MET [METRONIDAZOLE] [Suspect]
     Active Substance: METRONIDAZOLE
     Indication: ENTEROCOCCAL INFECTION
     Dosage: 0.5G, 3X/DAY
     Route: 065
  8. VANCOMYCIN [Suspect]
     Active Substance: VANCOMYCIN
     Indication: ANTIBIOTIC THERAPY
     Dosage: 1.0 G, QD
     Route: 042
  9. VANCOMYCIN [Suspect]
     Active Substance: VANCOMYCIN
     Dosage: 0.5 G, QD (2X0.5 G)
     Route: 042
  10. PIPERACILLIN,TAZOBACTAM [Suspect]
     Active Substance: PIPERACILLIN SODIUM\TAZOBACTAM SODIUM
     Dosage: 4.5 G, 3X/DAY
     Route: 065
  11. AMIKACIN. [Suspect]
     Active Substance: AMIKACIN
     Indication: ESCHERICHIA INFECTION
     Dosage: 1 G, (EVERY 48 HOURS)
     Route: 065
  12. AMIKACIN. [Suspect]
     Active Substance: AMIKACIN
     Indication: ENTEROCOCCAL INFECTION
  13. COLISTIN [Suspect]
     Active Substance: COLISTIN
     Indication: KLEBSIELLA INFECTION
     Dosage: 3 MILLION U, 3X/DAY
     Route: 065
  14. MEROPENEM. [Suspect]
     Active Substance: MEROPENEM
     Indication: ANTIBIOTIC THERAPY
     Dosage: 1.0 G, QD (2X1.0G)
     Route: 042
  15. COLISTIN [Suspect]
     Active Substance: COLISTIN
     Indication: PSEUDOMONAS INFECTION
     Dosage: 2 MILLION U, 2X/DAY
     Route: 065
  16. IMIPENEM [Suspect]
     Active Substance: IMIPENEM
     Indication: KLEBSIELLA INFECTION
     Dosage: 0.5 G, 2X/DAY
     Route: 065

REACTIONS (4)
  - Sepsis [Not Recovered/Not Resolved]
  - Drug resistance [Unknown]
  - Inflammatory marker increased [Unknown]
  - Pathogen resistance [Unknown]
